FAERS Safety Report 6921177-X (Version None)
Quarter: 2010Q3

REPORT INFORMATION
  Report Type: 
  Country: None (occurrence: None)
  Receive Date: 20100805
  Receipt Date: 20100420
  Transmission Date: 20110219
  Serious: No
  Sender: FDA-Public Use
  Company Number: US-001355

PATIENT
  Sex: Male

DRUGS (2)
  1. DEGARELIX (240 MG, 80 MG) [Suspect]
     Dosage: (240 MG 1X SUBCUTANEOUS), (80 MG 1X/MONTH SUBCUTANEOUS)
     Route: 058
     Dates: start: 20091201, end: 20091201
  2. DEGARELIX (240 MG, 80 MG) [Suspect]
     Dosage: (240 MG 1X SUBCUTANEOUS), (80 MG 1X/MONTH SUBCUTANEOUS)
     Route: 058
     Dates: start: 20100101

REACTIONS (3)
  - DIARRHOEA [None]
  - DYSPEPSIA [None]
  - ERUCTATION [None]
